FAERS Safety Report 25602929 (Version 1)
Quarter: 2025Q3

REPORT INFORMATION
  Report Type: Spontaneous
  Country: EU (occurrence: EU)
  Receive Date: 20250724
  Receipt Date: 20250724
  Transmission Date: 20251021
  Serious: Yes (Other)
  Sender: MYLAN
  Company Number: None

PATIENT
  Age: 21 Year
  Sex: Female

DRUGS (24)
  1. SERTRALINE [Suspect]
     Active Substance: SERTRALINE HYDROCHLORIDE
     Indication: Schizophrenia
     Dates: start: 20200203, end: 20200211
  2. SERTRALINE [Suspect]
     Active Substance: SERTRALINE HYDROCHLORIDE
     Dates: start: 20200203, end: 20200211
  3. SERTRALINE [Suspect]
     Active Substance: SERTRALINE HYDROCHLORIDE
     Route: 065
     Dates: start: 20200203, end: 20200211
  4. SERTRALINE [Suspect]
     Active Substance: SERTRALINE HYDROCHLORIDE
     Route: 065
     Dates: start: 20200203, end: 20200211
  5. SERTRALINE [Suspect]
     Active Substance: SERTRALINE HYDROCHLORIDE
     Dosage: 150 MILLIGRAM, QD (DAILY) (STOP DATE: 2020)
     Dates: start: 20200211
  6. SERTRALINE [Suspect]
     Active Substance: SERTRALINE HYDROCHLORIDE
     Dosage: 150 MILLIGRAM, QD (DAILY) (STOP DATE: 2020)
     Dates: start: 20200211
  7. SERTRALINE [Suspect]
     Active Substance: SERTRALINE HYDROCHLORIDE
     Dosage: 150 MILLIGRAM, QD (DAILY) (STOP DATE: 2020)
     Route: 065
     Dates: start: 20200211
  8. SERTRALINE [Suspect]
     Active Substance: SERTRALINE HYDROCHLORIDE
     Dosage: 150 MILLIGRAM, QD (DAILY) (STOP DATE: 2020)
     Route: 065
     Dates: start: 20200211
  9. INVEGA [Suspect]
     Active Substance: PALIPERIDONE
     Indication: Schizophrenia
     Dosage: 9 MILLIGRAM, QD (ONCE A DAY)
     Dates: start: 20191112, end: 20200203
  10. INVEGA [Suspect]
     Active Substance: PALIPERIDONE
     Dosage: 9 MILLIGRAM, QD (ONCE A DAY)
     Dates: start: 20191112, end: 20200203
  11. INVEGA [Suspect]
     Active Substance: PALIPERIDONE
     Dosage: 9 MILLIGRAM, QD (ONCE A DAY)
     Route: 048
     Dates: start: 20191112, end: 20200203
  12. INVEGA [Suspect]
     Active Substance: PALIPERIDONE
     Dosage: 9 MILLIGRAM, QD (ONCE A DAY)
     Route: 048
     Dates: start: 20191112, end: 20200203
  13. INVEGA [Suspect]
     Active Substance: PALIPERIDONE
  14. INVEGA [Suspect]
     Active Substance: PALIPERIDONE
  15. INVEGA [Suspect]
     Active Substance: PALIPERIDONE
     Route: 048
  16. INVEGA [Suspect]
     Active Substance: PALIPERIDONE
     Route: 048
  17. MELATONIN [Suspect]
     Active Substance: MELATONIN
     Indication: Schizophrenia
  18. MELATONIN [Suspect]
     Active Substance: MELATONIN
     Route: 065
  19. MELATONIN [Suspect]
     Active Substance: MELATONIN
     Route: 065
  20. MELATONIN [Suspect]
     Active Substance: MELATONIN
  21. OXAZEPAM [Suspect]
     Active Substance: OXAZEPAM
     Indication: Schizophrenia
  22. OXAZEPAM [Suspect]
     Active Substance: OXAZEPAM
     Route: 065
  23. OXAZEPAM [Suspect]
     Active Substance: OXAZEPAM
     Route: 065
  24. OXAZEPAM [Suspect]
     Active Substance: OXAZEPAM

REACTIONS (6)
  - Diabetes mellitus [Unknown]
  - Blood creatine phosphokinase increased [Recovering/Resolving]
  - Renal function test abnormal [Recovered/Resolved]
  - Weight increased [Recovered/Resolved]
  - Drug withdrawal syndrome [Unknown]
  - Hepatic enzyme increased [Recovering/Resolving]

NARRATIVE: CASE EVENT DATE: 20200501
